FAERS Safety Report 5115447-8 (Version None)
Quarter: 2006Q3

REPORT INFORMATION
  Report Type: 
  Country: None (occurrence: None)
  Receive Date: 20060921
  Receipt Date: 20060913
  Transmission Date: 20061208
  Serious: Yes (Hospitalization)
  Sender: FDA-Public Use
  Company Number: FRWYE859505SEP06

PATIENT
  Age: 34 Year
  Sex: Female

DRUGS (1)
  1. EFFEXOR [Suspect]
     Dosage: 25 TO 50 MG TOTAL DAILY
     Route: 048
     Dates: start: 20060801, end: 20060826

REACTIONS (6)
  - ACCOMMODATION DISORDER [None]
  - HEADACHE [None]
  - INCORRECT DOSE ADMINISTERED [None]
  - MYDRIASIS [None]
  - OPTIC NEURITIS [None]
  - VISUAL ACUITY REDUCED [None]
